FAERS Safety Report 6713322-6 (Version None)
Quarter: 2010Q2

REPORT INFORMATION
  Report Type: 
  Country: None (occurrence: None)
  Receive Date: 20100506
  Receipt Date: 20100430
  Transmission Date: 20101027
  Serious: Yes (Death, Hospitalization, Other)
  Sender: FDA-Public Use
  Company Number: FR-ELI_LILLY_AND_COMPANY-FR201004008455

PATIENT
  Sex: Male

DRUGS (7)
  1. GEMZAR [Suspect]
     Indication: PERITONEAL MESOTHELIOMA MALIGNANT ADVANCED
     Dosage: UNK, UNKNOWN
     Route: 042
     Dates: start: 20091001, end: 20091201
  2. ALIMTA [Suspect]
     Indication: PERITONEAL MESOTHELIOMA MALIGNANT
     Dosage: UNK, UNKNOWN
     Route: 065
     Dates: start: 20090401, end: 20091001
  3. CISPLATIN [Concomitant]
     Indication: PERITONEAL MESOTHELIOMA MALIGNANT
     Dosage: UNK, UNKNOWN
     Route: 065
     Dates: start: 20090401, end: 20091001
  4. DEPAKENE [Concomitant]
     Dosage: 400 MG, 2/D
     Route: 065
  5. KAYEXALATE [Concomitant]
     Dosage: 2 D/F, DAILY (1/D)
     Route: 065
  6. INSULIN [Concomitant]
     Dosage: 40 IU, DAILY (1/D) VIA PUMP
     Route: 065
  7. BLOOD TRANSFUSION, AUXILIARY PRODUCTS [Concomitant]
     Dosage: UNK, UNKNOWN
     Route: 065
     Dates: start: 20091224

REACTIONS (7)
  - DISSEMINATED INTRAVASCULAR COAGULATION [None]
  - INTERSTITIAL LUNG DISEASE [None]
  - MALIGNANT NEOPLASM PROGRESSION [None]
  - MULTI-ORGAN FAILURE [None]
  - OFF LABEL USE [None]
  - RENAL FAILURE ACUTE [None]
  - SHOCK [None]
